FAERS Safety Report 4637994-5 (Version None)
Quarter: 2005Q2

REPORT INFORMATION
  Report Type: 
  Country: None (occurrence: None)
  Receive Date: 20050415
  Receipt Date: 20050407
  Transmission Date: 20051028
  Serious: Yes (Hospitalization)
  Sender: FDA-Public Use
  Company Number: FRWYE565107APR05

PATIENT
  Age: 12 Year
  Sex: Female

DRUGS (6)
  1. TAZOCILLINE (PIPERACILLIN/TAZOBACTAM, INJECTION) [Suspect]
     Indication: SEPSIS
     Route: 042
     Dates: start: 20050204, end: 20050210
  2. TAZOCILLINE (PIPERACILLIN/TAZOBACTAM, INJECTION) [Suspect]
     Indication: SEPTIC EMBOLUS
     Route: 042
     Dates: start: 20050204, end: 20050210
  3. AMIKLIN (AMIKACIN, , ) [Suspect]
     Route: 042
     Dates: start: 20050204, end: 20050210
  4. RIFAMPICIN [Suspect]
     Route: 042
     Dates: start: 20050126, end: 20050210
  5. TRIFLUCAN (FLUCONAZOLE,, 0) [Suspect]
     Route: 042
     Dates: start: 20050126, end: 20050217
  6. VANCOCIN HCL [Suspect]
     Route: 042
     Dates: start: 20050126, end: 20050217

REACTIONS (7)
  - CYTOLYTIC HEPATITIS [None]
  - DRUG RASH WITH EOSINOPHILIA AND SYSTEMIC SYMPTOMS [None]
  - LYMPHOCYTIC DERMATITIS [None]
  - NEUTROPENIA [None]
  - PURPURA [None]
  - RASH VESICULAR [None]
  - URTICARIA GENERALISED [None]
